FAERS Safety Report 11409225 (Version 1)
Quarter: 2015Q3

REPORT INFORMATION
  Report Type: Spontaneous
  Country: TN (occurrence: TN)
  Receive Date: 20150824
  Receipt Date: 20150824
  Transmission Date: 20151125
  Serious: Yes (Other)
  Sender: FDA-Public Use
  Company Number: TN-PFIZER INC-2015270587

PATIENT
  Age: 21 Year
  Sex: Male

DRUGS (2)
  1. CYTARABINE. [Suspect]
     Active Substance: CYTARABINE
     Indication: ACUTE MYELOID LEUKAEMIA
     Dosage: 200 MG/M2, IN A 24 H INFUSION CYCLIC (THROUGH DAYS 1 TO 7)
  2. IDARUBICIN HCL [Suspect]
     Active Substance: IDARUBICIN HYDROCHLORIDE
     Indication: ACUTE MYELOID LEUKAEMIA
     Dosage: 12 MG/M2 CYCLIC (DAYS 1,2,3)

REACTIONS (3)
  - Neutropenia [Unknown]
  - Bacteraemia [Recovered/Resolved]
  - Bronchopulmonary aspergillosis [Unknown]
